FAERS Safety Report 23552860 (Version 1)
Quarter: 2024Q1

REPORT INFORMATION
  Report Type: Spontaneous
  Country: AU (occurrence: AU)
  Receive Date: 20240222
  Receipt Date: 20240222
  Transmission Date: 20240409
  Serious: Yes (Hospitalization, Other)
  Sender: FDA-Public Use
  Company Number: AU-MYLANLABS-2024M1016636

PATIENT
  Age: 86 Year
  Sex: Male

DRUGS (2)
  1. LIPITOR [Suspect]
     Active Substance: ATORVASTATIN CALCIUM
     Indication: Product used for unknown indication
     Dosage: 10 MILLIGRAM, (10 MG EVERY MANE)
     Route: 065
  2. LIPITOR [Suspect]
     Active Substance: ATORVASTATIN CALCIUM
     Indication: Cerebrovascular accident
     Dosage: UNK
     Route: 065

REACTIONS (8)
  - Fall [Unknown]
  - Limb injury [Unknown]
  - Disease recurrence [Unknown]
  - Contusion [Unknown]
  - Erythema [Unknown]
  - Rash [Unknown]
  - Weight decreased [Unknown]
  - Wrong technique in product usage process [Unknown]
